FAERS Safety Report 5582847-1 (Version None)
Quarter: 2007Q4

REPORT INFORMATION
  Report Type: 
  Country: None (occurrence: None)
  Receive Date: 20071231
  Receipt Date: 20071227
  Transmission Date: 20080405
  Serious: Yes (Hospitalization)
  Sender: FDA-Public Use
  Company Number: SP01666

PATIENT
  Age: 73 Year
  Sex: Male

DRUGS (4)
  1. VISICOL [Suspect]
     Indication: ENDOSCOPY LARGE BOWEL
     Dosage: 50G (50TAB), ORAL
     Route: 048
     Dates: start: 20071012, end: 20071012
  2. TRIPAMIDE [Concomitant]
  3. OLMESARTAN MEDOXOMIL [Concomitant]
  4. AMLODIPINE BESYLATE [Concomitant]

REACTIONS (3)
  - ABDOMINAL DISTENSION [None]
  - DYSPNOEA [None]
  - RENAL FAILURE ACUTE [None]
